FAERS Safety Report 6182349-8 (Version None)
Quarter: 2009Q2

REPORT INFORMATION
  Report Type: 
  Country: None (occurrence: None)
  Receive Date: 20090507
  Receipt Date: 20090428
  Transmission Date: 20091009
  Serious: Yes (Hospitalization)
  Sender: FDA-Public Use
  Company Number: PHHO2009AU04892

PATIENT
  Sex: Female
  Weight: 62 kg

DRUGS (4)
  1. RAD 666 RAD+TAB [Suspect]
     Indication: NON-SMALL CELL LUNG CANCER
     Dosage: 5 MG, QD
     Route: 048
     Dates: start: 20090331, end: 20090406
  2. CARBOPLATIN [Concomitant]
     Indication: NON-SMALL CELL LUNG CANCER
  3. PACLITAXEL [Concomitant]
     Indication: NON-SMALL CELL LUNG CANCER
  4. BEVACIZUMAB [Concomitant]
     Indication: NON-SMALL CELL LUNG CANCER

REACTIONS (2)
  - CHILLS [None]
  - FEBRILE NEUTROPENIA [None]
